FAERS Safety Report 14118132 (Version 1)
Quarter: 2017Q4

REPORT INFORMATION
  Report Type: Spontaneous
  Country: FR (occurrence: FR)
  Receive Date: 20171024
  Receipt Date: 20171024
  Transmission Date: 20180321
  Serious: Yes (Hospitalization)
  Sender: FDA-Public Use
  Company Number: FR-ALVOGEN-2017-ALVOGEN-093816

PATIENT
  Age: 86 Year
  Sex: Male

DRUGS (6)
  1. PLAVIX [Suspect]
     Active Substance: CLOPIDOGREL BISULFATE
     Indication: MYOCARDIAL ISCHAEMIA
     Dosage: FREQUENCY : EVERY 2 DAYS
     Route: 048
     Dates: start: 2004, end: 20170911
  2. ZYMADUO [Concomitant]
     Indication: PRODUCT USED FOR UNKNOWN INDICATION
     Dosage: DOSE: 1 DF Q3MO
  3. CRESTOR [Suspect]
     Active Substance: ROSUVASTATIN CALCIUM
     Indication: MYOCARDIAL ISCHAEMIA
     Dosage: FREQUENCY : EVERY 2 DAYS
     Route: 048
     Dates: end: 20170910
  4. ALLOPURINOL. [Suspect]
     Active Substance: ALLOPURINOL
     Indication: HYPERURICAEMIA
     Route: 048
     Dates: end: 20170910
  5. ATENOLOL. [Suspect]
     Active Substance: ATENOLOL
     Indication: MYOCARDIAL ISCHAEMIA
     Route: 048
     Dates: start: 2004
  6. COVERSYL [Suspect]
     Active Substance: PERINDOPRIL
     Indication: MYOCARDIAL ISCHAEMIA
     Route: 048
     Dates: start: 2004, end: 20170911

REACTIONS (1)
  - Pancreatitis acute [Not Recovered/Not Resolved]

NARRATIVE: CASE EVENT DATE: 20170908
